FAERS Safety Report 5534077-7 (Version None)
Quarter: 2007Q4

REPORT INFORMATION
  Report Type: 
  Country: None (occurrence: None)
  Receive Date: 20071129
  Receipt Date: 20071129
  Transmission Date: 20080405
  Serious: Yes (Other)
  Sender: FDA-Public Use
  Company Number: None

PATIENT
  Age: 58 Year
  Sex: Male

DRUGS (2)
  1. DULOXETINE 60MG [Suspect]
     Dosage: 60MG X1 PO
     Route: 048
     Dates: start: 20071108
  2. WARFARIN - STABLE DOSE [Suspect]
     Indication: MITRAL VALVE DISEASE
     Dosage: STABLE DOSE

REACTIONS (1)
  - INTERNATIONAL NORMALISED RATIO INCREASED [None]
